FAERS Safety Report 26064889 (Version 2)
Quarter: 2025Q4

REPORT INFORMATION
  Report Type: Spontaneous
  Country: GB (occurrence: GB)
  Receive Date: 20251119
  Receipt Date: 20251124
  Transmission Date: 20260117
  Serious: Yes (Other)
  Sender: Haleon PLC
  Company Number: GB-HALEON-2274737

PATIENT
  Age: 52 Year
  Sex: Female

DRUGS (2)
  1. IBUPROFEN [Suspect]
     Active Substance: IBUPROFEN
     Indication: Spinal osteoarthritis
  2. ACETAMINOPHEN [Suspect]
     Active Substance: ACETAMINOPHEN
     Indication: Pyrexia

REACTIONS (14)
  - Acute febrile neutrophilic dermatosis [Recovering/Resolving]
  - Parakeratosis [Recovering/Resolving]
  - Rash [Recovering/Resolving]
  - Productive cough [Recovering/Resolving]
  - Hyperkeratosis [Recovering/Resolving]
  - Pyrexia [Recovering/Resolving]
  - Oropharyngeal pain [Recovering/Resolving]
  - Acanthosis [Recovering/Resolving]
  - Leukocytosis [Recovering/Resolving]
  - Skin plaque [Recovering/Resolving]
  - Erythema [Recovering/Resolving]
  - Oropharyngeal erythema [Recovering/Resolving]
  - Skin lesion [Recovering/Resolving]
  - Decreased appetite [Recovering/Resolving]
